FAERS Safety Report 4957875-7 (Version None)
Quarter: 2006Q1

REPORT INFORMATION
  Report Type: 
  Country: None (occurrence: None)
  Receive Date: 20060127
  Receipt Date: 20050812
  Transmission Date: 20060701
  Serious: Yes (Hospitalization, Other)
  Sender: FDA-Public Use
  Company Number: 05-08-1427

PATIENT
  Age: 19 Year
  Sex: Female

DRUGS (4)
  1. CLOZAPINE [Suspect]
     Indication: SCHIZOPHRENIA
     Dosage: 400 MG QD; ORAL
     Route: 048
     Dates: start: 20050601, end: 20050801
  2. ARIPIPRAZOLE [Concomitant]
  3. LITHIUM [Concomitant]
  4. DULOXETINE HYDROCHLORIDE [Concomitant]

REACTIONS (2)
  - AGRANULOCYTOSIS [None]
  - FEBRILE NEUTROPENIA [None]
